FAERS Safety Report 13275084 (Version 1)
Quarter: 2017Q1

REPORT INFORMATION
  Report Type: Spontaneous
  Country: US (occurrence: US)
  Receive Date: 20170227
  Receipt Date: 20170227
  Transmission Date: 20170428
  Serious: No
  Sender: FDA-Public Use
  Company Number: US-ASTRAZENECA-2017SE19429

PATIENT
  Age: 70 Year
  Sex: Female
  Weight: 54.4 kg

DRUGS (1)
  1. ROSUVASTATIN. [Suspect]
     Active Substance: ROSUVASTATIN
     Indication: BLOOD CHOLESTEROL INCREASED
     Dosage: (PRESCRIBED ROSUVASTATIN 5MG TABLETS , CUT THE TABLET IN HALF AND TAKE 2.5MG ONCE A DAY)
     Route: 048
     Dates: start: 201611

REACTIONS (2)
  - Off label use [Unknown]
  - Myalgia [Not Recovered/Not Resolved]

NARRATIVE: CASE EVENT DATE: 201611
